FAERS Safety Report 18744496 (Version 1)
Quarter: 2021Q1

REPORT INFORMATION
  Report Type: Not Available
  Country: US (occurrence: US)
  Receive Date: 20210115
  Receipt Date: 20210115
  Transmission Date: 20210419
  Serious: No
  Sender: FDA-Public Use
  Company Number: US-NEUROCRINE BIOSCIENCES INC.-2021NBI00110

PATIENT
  Age: 63 Year
  Sex: Female

DRUGS (19)
  1. IBUPROFEN. [Concomitant]
     Active Substance: IBUPROFEN
  2. L?CLONIDINE [Concomitant]
  3. MILK OF MAG [Concomitant]
  4. VITAMIN D [Concomitant]
     Active Substance: VITAMIN D NOS
  5. INGREZZA [Suspect]
     Active Substance: VALBENAZINE
     Indication: TARDIVE DYSKINESIA
     Route: 048
  6. CARAFATE [Concomitant]
     Active Substance: SUCRALFATE
  7. FISH OIL [Concomitant]
     Active Substance: FISH OIL
  8. CO?Q ENZYME 10 [Concomitant]
  9. RANITIDINE. [Concomitant]
     Active Substance: RANITIDINE
  10. GABAPENTIN. [Concomitant]
     Active Substance: GABAPENTIN
  11. RISPERIDONE. [Concomitant]
     Active Substance: RISPERIDONE
  12. MULTIVITAMIN [Concomitant]
     Active Substance: VITAMINS
  13. DOCUSATE [Concomitant]
     Active Substance: DOCUSATE
  14. DRONABINOL. [Concomitant]
     Active Substance: DRONABINOL
  15. ESTRADIOL. [Concomitant]
     Active Substance: ESTRADIOL
  16. HYDROCODONE [Concomitant]
     Active Substance: HYDROCODONE
  17. BENZATROPINE [Concomitant]
     Active Substance: BENZTROPINE
  18. FLUTICASONE. [Concomitant]
     Active Substance: FLUTICASONE
  19. CLONAZEPAM. [Concomitant]
     Active Substance: CLONAZEPAM

REACTIONS (3)
  - Dizziness [Unknown]
  - Fall [Unknown]
  - Gait disturbance [Unknown]
